FAERS Safety Report 16925329 (Version 1)
Quarter: 2019Q4

REPORT INFORMATION
  Report Type: Spontaneous
  Country: US (occurrence: US)
  Receive Date: 20191016
  Receipt Date: 20191016
  Transmission Date: 20200122
  Serious: Yes (Hospitalization, Other)
  Sender: FDA-Public Use
  Company Number: None

PATIENT
  Age: 75 Year
  Sex: Male
  Weight: 82.7 kg

DRUGS (19)
  1. GLUCAGON AS DIRECTED [Concomitant]
  2. GABAPENTIN 300MG BID [Concomitant]
  3. PAROXETINE 20MG TABLET DAILY [Concomitant]
  4. LOSARTAN 100MG DAILY [Concomitant]
  5. LEVETRACETAM 500MG BID [Concomitant]
  6. AXICABTAGENE CILOLEUCEL [Suspect]
     Active Substance: AXICABTAGENE CILOLEUCEL
     Indication: DIFFUSE LARGE B-CELL LYMPHOMA REFRACTORY
     Dosage: ?          OTHER FREQUENCY:ONCE;?
     Route: 042
     Dates: start: 20190805, end: 20190805
  7. ACYCLOVIR  400MG BID [Concomitant]
  8. ENOXAPARIN 120MG QHS [Concomitant]
  9. PENTAMIDINE 300MG SOLUTION BY NEBULIZATION Q28DAYS [Concomitant]
  10. SPIRONOLACTONE 50MG TABLET DAILY [Concomitant]
  11. CHLORTHALIDONE 100MG QHS [Concomitant]
  12. LIDOCAINE 5% PATCH APPLIED DAILY [Concomitant]
  13. OXYCODONE IR 5-10MG Q4 HOURS PRN [Concomitant]
  14. PANTOPRAZOLE 40MG DR BID [Concomitant]
  15. URSODIOL 300MG BID [Concomitant]
  16. AMLODIPINE [Concomitant]
     Active Substance: AMLODIPINE BESYLATE
  17. INSULIN GLARGINE 50UNITS SQ QAM [Concomitant]
  18. INSULIN LISPRO TID AS NEEDED WITH MEALS [Concomitant]
  19. MELATONIN 3MG DAILY [Concomitant]

REACTIONS (5)
  - Unresponsive to stimuli [None]
  - Wound complication [None]
  - Pyrexia [None]
  - Hypotension [None]
  - Decubitus ulcer [None]

NARRATIVE: CASE EVENT DATE: 20191014
